FAERS Safety Report 9066725 (Version 1)
Quarter: 2013Q1

REPORT INFORMATION
  Report Type: Report from Study
  Country: US (occurrence: US)
  Receive Date: 20130131
  Receipt Date: 20130131
  Transmission Date: 20140127
  Serious: No
  Sender: FDA-Public Use
  Company Number: US-ABBOTT-12P-163-1013179-00

PATIENT
  Age: 45 Year
  Sex: Female

DRUGS (6)
  1. HUMIRA [Suspect]
     Indication: PSORIASIS
     Dates: start: 20121101, end: 20121101
  2. HUMIRA [Suspect]
     Dates: start: 20121108
  3. LISINOPRIL [Concomitant]
     Indication: HYPERTENSION
  4. INDERAL [Concomitant]
     Indication: HYPERTENSION
  5. WELLBUTRIN [Concomitant]
     Indication: DEPRESSION
  6. ESTROGEN/TESTOSTERONE [Concomitant]
     Indication: HORMONE REPLACEMENT THERAPY
     Dosage: DAILY

REACTIONS (2)
  - Injection site extravasation [Not Recovered/Not Resolved]
  - Injection site pain [Not Recovered/Not Resolved]
